FAERS Safety Report 10649498 (Version 4)
Quarter: 2015Q1

REPORT INFORMATION
  Report Type: Spontaneous
  Country: US (occurrence: US)
  Receive Date: 20141212
  Receipt Date: 20150226
  Transmission Date: 20150720
  Serious: Yes (Disabling)
  Sender: FDA-Public Use
  Company Number: US-009507513-1204USA04475

PATIENT
  Sex: Male
  Weight: 93.88 kg

DRUGS (2)
  1. PROPECIA [Suspect]
     Active Substance: FINASTERIDE
     Indication: ALOPECIA
     Dosage: 1 MG, UNK
     Route: 048
     Dates: start: 201102, end: 201109
  2. FINASTERIDE. [Suspect]
     Active Substance: FINASTERIDE
     Indication: ALOPECIA
     Dosage: 1.25 MG (5 MG CUT IN QUARTERS), UNK
     Route: 048
     Dates: start: 201102, end: 201109

REACTIONS (12)
  - Fatigue [Unknown]
  - Ejaculation disorder [Not Recovered/Not Resolved]
  - Sexual dysfunction [Not Recovered/Not Resolved]
  - Cognitive disorder [Not Recovered/Not Resolved]
  - Ejaculation failure [Not Recovered/Not Resolved]
  - Organic erectile dysfunction [Unknown]
  - Libido decreased [Not Recovered/Not Resolved]
  - Testicular atrophy [Unknown]
  - Anxiety [Not Recovered/Not Resolved]
  - Erectile dysfunction [Not Recovered/Not Resolved]
  - Depression [Not Recovered/Not Resolved]
  - Wrong technique in drug usage process [Unknown]

NARRATIVE: CASE EVENT DATE: 201102
